FAERS Safety Report 7335838-4 (Version None)
Quarter: 2011Q1

REPORT INFORMATION
  Report Type: 
  Country: None (occurrence: None)
  Receive Date: 20110307
  Receipt Date: 20110223
  Transmission Date: 20110831
  Serious: Yes (Hospitalization, Other)
  Sender: FDA-Public Use
  Company Number: US-MERCK-1008USA02116

PATIENT
  Age: 49 Year
  Sex: Female
  Weight: 46 kg

DRUGS (5)
  1. ACTONEL [Suspect]
     Indication: OSTEOPENIA
     Route: 048
     Dates: start: 20051001, end: 20061101
  2. FOSAMAX PLUS D [Suspect]
     Indication: OSTEOPENIA
     Route: 048
     Dates: start: 20061101, end: 20090101
  3. ACTONEL [Suspect]
     Indication: OSTEOPOROSIS
     Route: 048
     Dates: start: 20051001, end: 20061101
  4. ZESTRIL [Concomitant]
     Route: 065
     Dates: start: 20010101
  5. FOSAMAX PLUS D [Suspect]
     Indication: OSTEOPOROSIS
     Route: 048
     Dates: start: 20061101, end: 20090101

REACTIONS (42)
  - CHRONIC SINUSITIS [None]
  - VAGINAL INFECTION [None]
  - TRANSIENT ISCHAEMIC ATTACK [None]
  - RHINORRHOEA [None]
  - DEPRESSION [None]
  - BLOOD PRESSURE INCREASED [None]
  - BRONCHITIS [None]
  - JAW FRACTURE [None]
  - LIVER DISORDER [None]
  - STOMATITIS [None]
  - PAIN IN JAW [None]
  - EDENTULOUS [None]
  - OSTEONECROSIS OF JAW [None]
  - VISION BLURRED [None]
  - PARAESTHESIA [None]
  - SINUS CONGESTION [None]
  - SEASONAL ALLERGY [None]
  - COUGH [None]
  - EXOSTOSIS [None]
  - OSTEOMYELITIS [None]
  - ANXIETY [None]
  - CELLULITIS [None]
  - ORAL INFECTION [None]
  - TRISMUS [None]
  - OSTEOARTHRITIS [None]
  - DENTAL CARIES [None]
  - MYALGIA [None]
  - LYMPHADENOPATHY [None]
  - TOOTH INFECTION [None]
  - HYPERGLYCAEMIA [None]
  - URTICARIA [None]
  - DYSPHAGIA [None]
  - FISTULA DISCHARGE [None]
  - EMPHYSEMA [None]
  - ABSCESS OF SALIVARY GLAND [None]
  - CLOSTRIDIUM DIFFICILE COLITIS [None]
  - MYCOTIC ALLERGY [None]
  - ARTHRALGIA [None]
  - TOOTH DISORDER [None]
  - FEMUR FRACTURE [None]
  - IMPAIRED HEALING [None]
  - SLEEP PARALYSIS [None]
